FAERS Safety Report 20754527 (Version 1)
Quarter: 2022Q2

REPORT INFORMATION
  Report Type: Spontaneous
  Country: US (occurrence: None)
  Receive Date: 20220426
  Receipt Date: 20220426
  Transmission Date: 20220720
  Serious: No
  Sender: FDA-Public Use
  Company Number: US-ROCHE-2979041

PATIENT
  Sex: Male

DRUGS (2)
  1. ESBRIET [Suspect]
     Active Substance: PIRFENIDONE
     Indication: Idiopathic pulmonary fibrosis
     Dosage: 1 CAPSULE 3 TIMES A DAY FOR ONE WEEK THEN 2 CAPSULES 3 TIMES A DAY FOR 1 WEEK AND THEN 3 CAPSULES 3
     Route: 048
  2. ESBRIET [Suspect]
     Active Substance: PIRFENIDONE
     Indication: Pulmonary hypertension

REACTIONS (2)
  - Drug ineffective [Unknown]
  - Hypertension [Unknown]
